FAERS Safety Report 8591007-1 (Version None)
Quarter: 2012Q3

REPORT INFORMATION
  Report Type: 
  Country: None (occurrence: None)
  Receive Date: 20120813
  Receipt Date: 20120806
  Transmission Date: 20120928
  Serious: Yes (Other)
  Sender: FDA-Public Use
  Company Number: US-ABBOTT-12P-163-0965436-00

PATIENT
  Sex: Male
  Weight: 61.29 kg

DRUGS (1)
  1. HUMIRA [Suspect]
     Indication: CROHN'S DISEASE
     Dosage: ON HOLD

REACTIONS (4)
  - SINUSITIS [None]
  - PROSTATIC DISORDER [None]
  - LACERATION [None]
  - PAIN [None]
